FAERS Safety Report 7742434-3 (Version None)
Quarter: 2011Q3

REPORT INFORMATION
  Report Type: 
  Country: None (occurrence: None)
  Receive Date: 20110907
  Receipt Date: 20110907
  Transmission Date: 20111222
  Serious: Yes (Other)
  Sender: FDA-Public Use
  Company Number: None

PATIENT
  Age: 64 Year
  Sex: Female

DRUGS (1)
  1. RAD001 [Suspect]
     Indication: WALDENSTROM'S MACROGLOBULINAEMIA
     Dosage: 7.5MG/ DAYS 1-28 PO
     Route: 048
     Dates: start: 20110729, end: 20110814

REACTIONS (1)
  - SWOLLEN TONGUE [None]
